FAERS Safety Report 8269388-8 (Version None)
Quarter: 2012Q2

REPORT INFORMATION
  Report Type: 
  Country: None (occurrence: None)
  Receive Date: 20120409
  Receipt Date: 20120217
  Transmission Date: 20120825
  Serious: No
  Sender: FDA-Public Use
  Company Number: US-ASTRAZENECA-2011SE75381

PATIENT
  Age: 26113 Day
  Sex: Female

DRUGS (1)
  1. BRILINTA [Suspect]
     Route: 048
     Dates: start: 20111206, end: 20111213

REACTIONS (2)
  - SPEECH DISORDER [None]
  - DYSPNOEA [None]
